FAERS Safety Report 10272292 (Version 1)
Quarter: 2014Q3

REPORT INFORMATION
  Report Type: Report from Study
  Country: JP (occurrence: JP)
  Receive Date: 20140702
  Receipt Date: 20140702
  Transmission Date: 20150326
  Serious: Yes (Other)
  Sender: FDA-Public Use
  Company Number: JP-ROCHE-1423582

PATIENT

DRUGS (4)
  1. BEVACIZUMAB [Suspect]
     Active Substance: BEVACIZUMAB
     Indication: NON-SMALL CELL LUNG CANCER
     Route: 065
  2. PEMETREXED [Suspect]
     Active Substance: PEMETREXED
     Indication: NON-SMALL CELL LUNG CANCER
     Route: 065
  3. PACLITAXEL. [Suspect]
     Active Substance: PACLITAXEL
     Indication: NON-SMALL CELL LUNG CANCER
     Route: 065
  4. CARBOPLATIN. [Suspect]
     Active Substance: CARBOPLATIN
     Indication: NON-SMALL CELL LUNG CANCER
     Dosage: 6 MG/ML/MIN OR 5 MG/ML/MIN
     Route: 065

REACTIONS (21)
  - Gingival bleeding [Unknown]
  - Cardiac ventricular thrombosis [Recovered/Resolved]
  - Hepatotoxicity [Unknown]
  - Proteinuria [Unknown]
  - Alopecia [Unknown]
  - Hypersensitivity [Unknown]
  - Neutropenia [Unknown]
  - Gastrointestinal haemorrhage [Unknown]
  - Hypertension [Unknown]
  - Ventricular arrhythmia [Unknown]
  - Fatigue [Unknown]
  - Nausea [Unknown]
  - Hyponatraemia [Unknown]
  - Myalgia [Unknown]
  - Epistaxis [Unknown]
  - Thrombocytopenia [Unknown]
  - Anaemia [Unknown]
  - Decreased appetite [Unknown]
  - Neuropathy peripheral [Unknown]
  - Stomatitis [Unknown]
  - Dysgeusia [Unknown]
